FAERS Safety Report 4519916-0 (Version None)
Quarter: 2004Q4

REPORT INFORMATION
  Report Type: 
  Country: None (occurrence: None)
  Receive Date: 20041207
  Receipt Date: 20041124
  Transmission Date: 20050328
  Serious: Yes (Other)
  Sender: FDA-Public Use
  Company Number: JP-JNJFOC-20041200719

PATIENT

DRUGS (1)
  1. ITRIZOLE [Suspect]
     Route: 049

REACTIONS (2)
  - DEAFNESS [None]
  - SUDDEN HEARING LOSS [None]
